FAERS Safety Report 5766227-1 (Version None)
Quarter: 2008Q2

REPORT INFORMATION
  Report Type: 
  Country: None (occurrence: None)
  Receive Date: 20080606
  Receipt Date: 20080522
  Transmission Date: 20081010
  Serious: Yes (Hospitalization, Other)
  Sender: FDA-Public Use
  Company Number: 2008S1006248

PATIENT
  Age: 49 Year
  Sex: Female

DRUGS (5)
  1. BYSTOLIC [Suspect]
     Indication: HYPERTENSION
     Dosage: 5 MG; DAILY; ORAL
     Route: 048
     Dates: start: 20080311, end: 20080411
  2. AVALIDE (CON.) [Concomitant]
  3. POTASSIUM (CON.) [Concomitant]
  4. DIGITEK (CON.) [Concomitant]
  5. WARFARIN (CON.) [Concomitant]

REACTIONS (1)
  - CARDIAC FAILURE CONGESTIVE [None]
